FAERS Safety Report 10025347 (Version 2)
Quarter: 2014Q3

REPORT INFORMATION
  Report Type: Spontaneous
  Country: FR (occurrence: FR)
  Receive Date: 20140320
  Receipt Date: 20140808
  Transmission Date: 20150326
  Serious: Yes (Other)
  Sender: FDA-Public Use
  Company Number: FR-GLAXOSMITHKLINE-B0976153A

PATIENT
  Age: 50 Year
  Sex: Male
  Weight: 82 kg

DRUGS (1)
  1. MALARONE [Suspect]
     Active Substance: ATOVAQUONE\PROGUANIL HYDROCHLORIDE
     Indication: MALARIA PROPHYLAXIS
     Route: 048
     Dates: start: 20130424, end: 20130515

REACTIONS (3)
  - Retinal detachment [Recovered/Resolved with Sequelae]
  - Visual impairment [Not Recovered/Not Resolved]
  - Retinal neovascularisation [Recovered/Resolved with Sequelae]

NARRATIVE: CASE EVENT DATE: 201306
